FAERS Safety Report 19846448 (Version 1)
Quarter: 2021Q3

REPORT INFORMATION
  Report Type: Spontaneous
  Country: US (occurrence: US)
  Receive Date: 20210917
  Receipt Date: 20210917
  Transmission Date: 20211014
  Serious: Yes (Other)
  Sender: FDA-Public Use
  Company Number: None

PATIENT
  Age: 56 Year
  Sex: Female

DRUGS (14)
  1. VALACYCLOVIR [Concomitant]
     Active Substance: VALACYCLOVIR HYDROCHLORIDE
     Dates: start: 20210904
  2. VALACYCLOVIR [Concomitant]
     Active Substance: VALACYCLOVIR HYDROCHLORIDE
     Dates: start: 20210507
  3. VASCEPA [Concomitant]
     Active Substance: ICOSAPENT ETHYL
     Dates: start: 20170809, end: 20210917
  4. VALTREX [Concomitant]
     Active Substance: VALACYCLOVIR HYDROCHLORIDE
     Dates: start: 20170809, end: 20210917
  5. VITAMIN B COMPLEX [Concomitant]
     Active Substance: CYANOCOBALAMIN\DEXPANTHENOL\NIACINAMIDE\PYRIDOXINE HYDROCHLORIDE\RIBOFLAVIN 5^-PHOSPHATE SODIUM\THIAMINE HYDROCHLORIDE\VITAMIN B COMPLEX
     Dates: start: 20210917
  6. ZINC. [Concomitant]
     Active Substance: ZINC
     Dates: start: 20210917
  7. GABAPENTIN. [Concomitant]
     Active Substance: GABAPENTIN
     Dates: start: 20210728
  8. KESIMPTA [Suspect]
     Active Substance: OFATUMUMAB
     Indication: MULTIPLE SCLEROSIS
     Dosage: ?          OTHER FREQUENCY:WEEKLY;?
     Route: 058
     Dates: start: 20210914
  9. MULTIVITAMIN [Concomitant]
     Active Substance: VITAMINS
     Dates: start: 20170809, end: 20210917
  10. PANTOPRAZOLE [Concomitant]
     Active Substance: PANTOPRAZOLE
     Dates: start: 20210123
  11. VITAMIN C [Concomitant]
     Active Substance: ASCORBIC ACID
     Dates: start: 20210917
  12. PROBIOTIC [Concomitant]
     Active Substance: PROBIOTICS NOS
     Dates: start: 20170809
  13. VITAMIN D3 [Concomitant]
     Active Substance: CHOLECALCIFEROL
     Dates: start: 20210917
  14. MYRBETRIQ [Concomitant]
     Active Substance: MIRABEGRON
     Dates: start: 20210908

REACTIONS (5)
  - Fatigue [None]
  - Visual impairment [None]
  - Influenza like illness [None]
  - Diplegia [None]
  - Depression [None]

NARRATIVE: CASE EVENT DATE: 20210915
